FAERS Safety Report 19449448 (Version 1)
Quarter: 2021Q2

REPORT INFORMATION
  Report Type: Spontaneous
  Country: US (occurrence: US)
  Receive Date: 20210622
  Receipt Date: 20210622
  Transmission Date: 20210717
  Serious: No
  Sender: FDA-Public Use
  Company Number: US-ASTELLAS-2021US017265

PATIENT
  Sex: Male

DRUGS (2)
  1. VESICARE [Suspect]
     Active Substance: SOLIFENACIN SUCCINATE
     Indication: URINARY RETENTION
     Dosage: UNK UNK, ONCE DAILY (IN THE MORNING)
     Route: 065
     Dates: start: 2021
  2. UROXATRAL [Suspect]
     Active Substance: ALFUZOSIN HYDROCHLORIDE
     Indication: URINARY RETENTION
     Dosage: UNK UNK, AT BEDTIME (AT NIGHT)
     Route: 065

REACTIONS (1)
  - Drug ineffective [Unknown]
